FAERS Safety Report 25043588 (Version 2)
Quarter: 2025Q3

REPORT INFORMATION
  Report Type: Spontaneous
  Country: GB (occurrence: GB)
  Receive Date: 20250306
  Receipt Date: 20250809
  Transmission Date: 20251020
  Serious: Yes (Other)
  Sender: ALEXION PHARMACEUTICALS
  Company Number: None

PATIENT
  Sex: Female

DRUGS (1)
  1. SAPHNELO [Suspect]
     Active Substance: ANIFROLUMAB-FNIA
     Indication: Product used for unknown indication
     Route: 065

REACTIONS (1)
  - Palmoplantar pustulosis [Not Recovered/Not Resolved]

NARRATIVE: CASE EVENT DATE: 20240201
